FAERS Safety Report 5593291-5 (Version None)
Quarter: 2008Q1

REPORT INFORMATION
  Report Type: 
  Country: None (occurrence: None)
  Receive Date: 20080116
  Receipt Date: 20080116
  Transmission Date: 20080703
  Serious: Yes (Other)
  Sender: FDA-Public Use
  Company Number: A0699366A

PATIENT
  Age: 63 Year
  Sex: Female
  Weight: 56 kg

DRUGS (2)
  1. PAZOPANIB [Suspect]
     Dosage: 400MG PER DAY
     Route: 048
     Dates: start: 20070727
  2. LAPATINIB [Suspect]
     Dosage: 1000MG PER DAY
     Route: 048
     Dates: start: 20070727

REACTIONS (1)
  - HYPONATRAEMIA [None]
